FAERS Safety Report 15266270 (Version 1)
Quarter: 2018Q3

REPORT INFORMATION
  Report Type: Spontaneous
  Country: US (occurrence: US)
  Receive Date: 20180810
  Receipt Date: 20180810
  Transmission Date: 20181010
  Serious: Yes (Other)
  Sender: FDA-Public Use
  Company Number: US-TEVA-2018-US-941302

PATIENT
  Sex: Female

DRUGS (3)
  1. GABAPENTIN. [Suspect]
     Active Substance: GABAPENTIN
     Route: 065
  2. SODIUM LAURYL SULFATE [Suspect]
     Active Substance: SODIUM LAURYL SULFATE
     Route: 065
  3. RISEDRONIC ACID [Suspect]
     Active Substance: RISEDRONIC ACID
     Route: 065

REACTIONS (4)
  - Swelling face [Unknown]
  - Dyspnoea [Unknown]
  - Oral herpes [Unknown]
  - Stomatitis [Unknown]

NARRATIVE: CASE EVENT DATE: 20150220
